FAERS Safety Report 9397128 (Version 1)
Quarter: 2013Q3

REPORT INFORMATION
  Report Type: Spontaneous
  Country: US (occurrence: US)
  Receive Date: 20130712
  Receipt Date: 20130712
  Transmission Date: 20140515
  Serious: No
  Sender: FDA-Public Use
  Company Number: US-009507513-1307USA004789

PATIENT
  Age: 46 Year
  Sex: Male

DRUGS (7)
  1. PEG-INTRON [Suspect]
     Indication: HEPATITIS C
     Dosage: 150 MICROGRAM, QW,REDIPEN
     Route: 058
     Dates: start: 20130624
  2. REBETOL [Suspect]
     Indication: HEPATITIS C
     Dosage: UNK
     Dates: start: 20130624
  3. ISENTRESS [Concomitant]
  4. TRUVADA [Concomitant]
  5. WELLBUTRIN XL [Concomitant]
  6. LAMICTAL [Concomitant]
  7. TRAZODONE HYDROCHLORIDE [Concomitant]

REACTIONS (6)
  - Aphagia [Recovering/Resolving]
  - Vomiting [Recovering/Resolving]
  - Pyrexia [Recovering/Resolving]
  - Nausea [Recovering/Resolving]
  - Headache [Recovering/Resolving]
  - Device malfunction [Unknown]
